FAERS Safety Report 19904965 (Version 1)
Quarter: 2021Q3

REPORT INFORMATION
  Report Type: Spontaneous
  Country: JP (occurrence: JP)
  Receive Date: 20210930
  Receipt Date: 20210930
  Transmission Date: 20211014
  Serious: Yes (Other)
  Sender: FDA-Public Use
  Company Number: NVSJ2021JP014385

PATIENT
  Sex: Male

DRUGS (1)
  1. DICLOFENAC SODIUM. [Suspect]
     Active Substance: DICLOFENAC SODIUM
     Indication: ABDOMINAL PAIN UPPER
     Dosage: UNK UNK, PRN
     Route: 054

REACTIONS (7)
  - Gastritis erosive [Recovering/Resolving]
  - Product use in unapproved indication [Unknown]
  - Gastric ulcer [Recovering/Resolving]
  - Gastric cancer [Unknown]
  - Chronic gastritis [Unknown]
  - Faeces discoloured [Unknown]
  - Epigastric discomfort [Unknown]
